FAERS Safety Report 12546631 (Version 2)
Quarter: 2016Q3

REPORT INFORMATION
  Report Type: Spontaneous
  Country: US (occurrence: US)
  Receive Date: 20160711
  Receipt Date: 20160715
  Transmission Date: 20161109
  Serious: Yes (Hospitalization)
  Sender: FDA-Public Use
  Company Number: US-PFIZER INC-2016337515

PATIENT
  Age: 53 Year
  Sex: Male
  Weight: 98 kg

DRUGS (9)
  1. LYRICA [Suspect]
     Active Substance: PREGABALIN
     Indication: ANXIETY
     Dosage: 100 MG, 3X/DAY; 300MG A DAY
     Dates: start: 201510
  2. ZICONOTIDE [Concomitant]
     Active Substance: ZICONOTIDE
     Indication: PAIN
  3. CYMBALTA [Concomitant]
     Active Substance: DULOXETINE HYDROCHLORIDE
     Indication: DEPRESSION
     Dosage: 120 MG, DAILY; TWO TABLETS A DAY AND TOTAL WAS 120MG.
  4. KLONOPIN [Concomitant]
     Active Substance: CLONAZEPAM
     Indication: ANXIETY
     Dosage: 2 MG, 3X/DAY
  5. ZANAFLEX [Concomitant]
     Active Substance: TIZANIDINE HYDROCHLORIDE
     Indication: MUSCLE SPASMS
     Dosage: 2 MG, 2X/DAY
  6. FENTANYL. [Concomitant]
     Active Substance: FENTANYL
     Indication: PAIN
     Dosage: 75 UG, PATCH
     Route: 062
     Dates: start: 2006
  7. CYMBALTA [Concomitant]
     Active Substance: DULOXETINE HYDROCHLORIDE
     Indication: PAIN
  8. LYRICA [Suspect]
     Active Substance: PREGABALIN
     Indication: PAIN
     Dosage: 50 MG, 3X/DAY
  9. ROXICODONE [Concomitant]
     Active Substance: OXYCODONE HYDROCHLORIDE
     Indication: PAIN
     Dosage: 30 MG, 4X/DAY
     Dates: start: 2006

REACTIONS (9)
  - Swelling [Unknown]
  - Drug ineffective [Unknown]
  - Fatigue [Unknown]
  - Hypotension [Unknown]
  - Muscular weakness [Not Recovered/Not Resolved]
  - Oedema [Recovered/Resolved]
  - Post-traumatic stress disorder [Unknown]
  - Depression [Unknown]
  - Asthenia [Unknown]

NARRATIVE: CASE EVENT DATE: 2016
